FAERS Safety Report 8117362-4 (Version None)
Quarter: 2012Q1

REPORT INFORMATION
  Report Type: 
  Country: None (occurrence: None)
  Receive Date: 20120206
  Receipt Date: 20120127
  Transmission Date: 20120608
  Serious: Yes (Hospitalization, Other)
  Sender: FDA-Public Use
  Company Number: ES-ASTRAZENECA-2012SE06304

PATIENT
  Sex: Female

DRUGS (2)
  1. MOXIFLOXACIN [Concomitant]
  2. VIMOVO [Suspect]
     Indication: PYREXIA
     Route: 048

REACTIONS (2)
  - ANAPHYLACTIC SHOCK [None]
  - OFF LABEL USE [None]
